FAERS Safety Report 24613180 (Version 1)
Quarter: 2024Q4

REPORT INFORMATION
  Report Type: Spontaneous
  Country: US (occurrence: US)
  Receive Date: 20241113
  Receipt Date: 20241113
  Transmission Date: 20250114
  Serious: No
  Sender: CSL BEHRING
  Company Number: US-BEH-2024183297

PATIENT

DRUGS (3)
  1. HIZENTRA [Suspect]
     Active Substance: HUMAN IMMUNOGLOBULIN G
     Dosage: (WEEKLY INFUSIONS)
     Route: 065
  2. TYLENOL [Concomitant]
     Active Substance: ACETAMINOPHEN
  3. BENADRYL [Concomitant]
     Active Substance: DIPHENHYDRAMINE HYDROCHLORIDE

REACTIONS (7)
  - Infusion site pruritus [Unknown]
  - Infusion site urticaria [Unknown]
  - Infusion site erythema [Recovered/Resolved]
  - Dry skin [Unknown]
  - Feeling cold [Unknown]
  - Headache [Unknown]
  - Therapy cessation [Unknown]
